FAERS Safety Report 7461397-1 (Version None)
Quarter: 2011Q2

REPORT INFORMATION
  Report Type: 
  Country: None (occurrence: None)
  Receive Date: 20110506
  Receipt Date: 20110427
  Transmission Date: 20111010
  Serious: Yes (Other)
  Sender: FDA-Public Use
  Company Number: US-SHIRE-SPV1-2011-00417

PATIENT
  Sex: Male
  Weight: 31.746 kg

DRUGS (5)
  1. FLOVENT [Concomitant]
     Indication: ASTHMA
     Dosage: UNK UNK, UNKNOWN
     Route: 065
  2. VYVANSE [Suspect]
     Indication: ATTENTION DEFICIT/HYPERACTIVITY DISORDER
     Dosage: 30 MG, 1X/DAY:QD
     Route: 048
     Dates: start: 20110214, end: 20110224
  3. ZYRTEC [Concomitant]
     Indication: HYPERSENSITIVITY
     Dosage: 10 MG, UNKNOWN
  4. ALBUTEROL [Concomitant]
     Indication: ASTHMA
     Dosage: UNK UNK, UNKNOWN
     Route: 055
  5. XOPENEX HFA [Concomitant]
     Indication: ASTHMA
     Dosage: UNK UNK, UNKNOWN
     Route: 055

REACTIONS (1)
  - SELF-INJURIOUS IDEATION [None]
